FAERS Safety Report 23952108 (Version 1)
Quarter: 2024Q2

REPORT INFORMATION
  Report Type: Report from Study
  Country: BR (occurrence: BR)
  Receive Date: 20240607
  Receipt Date: 20240607
  Transmission Date: 20240715
  Serious: Yes (Other)
  Sender: FDA-Public Use
  Company Number: BR-TAKEDA-BR201943580

PATIENT
  Sex: Male
  Weight: 102 kg

DRUGS (5)
  1. HEMO-8R [Suspect]
     Active Substance: ANTIHEMOPHILIC FACTOR, HUMAN RECOMBINANT
     Indication: Factor VIII deficiency
     Dosage: 2000 INTERNATIONAL UNIT, 3/WEEK
     Route: 042
     Dates: start: 19871013
  2. HEMO-8R [Suspect]
     Active Substance: ANTIHEMOPHILIC FACTOR, HUMAN RECOMBINANT
     Dosage: 2000 INTERNATIONAL UNIT, 3/WEEK
     Route: 042
     Dates: start: 20191209
  3. HEMO-8R [Suspect]
     Active Substance: ANTIHEMOPHILIC FACTOR, HUMAN RECOMBINANT
     Dosage: 2500 INTERNATIONAL UNIT, 3/WEEK
     Route: 042
  4. HEMO-8R [Suspect]
     Active Substance: ANTIHEMOPHILIC FACTOR, HUMAN RECOMBINANT
     Dosage: 5000 INTERNATIONAL UNIT, 3/WEEK
     Route: 042
  5. NIMESULIDE [Suspect]
     Active Substance: NIMESULIDE
     Indication: Antiinflammatory therapy
     Dosage: UNK
     Route: 065

REACTIONS (5)
  - Haematochezia [Unknown]
  - Internal haemorrhage [Unknown]
  - Weight decreased [Unknown]
  - Abdominal discomfort [Unknown]
  - Dyspepsia [Recovered/Resolved]
